FAERS Safety Report 11482713 (Version 1)
Quarter: 2015Q3

REPORT INFORMATION
  Report Type: Spontaneous
  Country: US (occurrence: None)
  Receive Date: 20150908
  Receipt Date: 20150908
  Transmission Date: 20151125
  Serious: Yes (Other)
  Sender: FDA-Public Use
  Company Number: None

PATIENT
  Age: 92 Year
  Sex: Female

DRUGS (3)
  1. SYNTHROID [Concomitant]
     Active Substance: LEVOTHYROXINE SODIUM
  2. LOW DOSE ASPIRIN [Concomitant]
     Active Substance: ASPIRIN
  3. NITROFURANTOIN. [Suspect]
     Active Substance: NITROFURANTOIN
     Indication: URINARY TRACT INFECTION
     Dosage: 1  TWICE DAILY TAKEN BY MOUTH?DATES OF USE:  6
     Route: 048

REACTIONS (7)
  - Rash [None]
  - Nausea [None]
  - Back pain [None]
  - Pruritus [None]
  - Muscular weakness [None]
  - Urticaria [None]
  - Headache [None]

NARRATIVE: CASE EVENT DATE: 20150830
